FAERS Safety Report 18208832 (Version 8)
Quarter: 2024Q4

REPORT INFORMATION
  Report Type: Report from Study
  Country: DE (occurrence: DE)
  Receive Date: 20200828
  Receipt Date: 20241024
  Transmission Date: 20250115
  Serious: Yes (Life-Threatening, Hospitalization)
  Sender: ROCHE
  Company Number: DE-ROCHE-2667023

PATIENT
  Sex: Female
  Weight: 2.7 kg

DRUGS (4)
  1. OCRELIZUMAB [Suspect]
     Active Substance: OCRELIZUMAB
     Indication: Product used for unknown indication
     Route: 064
     Dates: start: 20181123, end: 20181123
  2. OCRELIZUMAB [Suspect]
     Active Substance: OCRELIZUMAB
     Route: 064
     Dates: start: 20190523, end: 20190523
  3. ACETAMINOPHEN [Concomitant]
     Active Substance: ACETAMINOPHEN
     Dates: start: 20190727, end: 20190727
  4. CORTISON [Concomitant]
     Dates: start: 20191206, end: 20191207

REACTIONS (4)
  - Haemangioma congenital [Recovered/Resolved]
  - Neurodermatitis [Recovering/Resolving]
  - Foetal exposure during pregnancy [Unknown]
  - Premature baby [Unknown]

NARRATIVE: CASE EVENT DATE: 20200116
